FAERS Safety Report 7557054-3 (Version None)
Quarter: 2011Q2

REPORT INFORMATION
  Report Type: 
  Country: None (occurrence: None)
  Receive Date: 20110620
  Receipt Date: 20110617
  Transmission Date: 20111010
  Serious: Yes (Death)
  Sender: FDA-Public Use
  Company Number: PHFR2011GB03291

PATIENT
  Sex: Male
  Weight: 95 kg

DRUGS (8)
  1. CLOZAPINE [Suspect]
     Indication: SCHIZOPHRENIA
     Dosage: 500 MG, UNK
     Route: 048
     Dates: start: 19901106
  2. VALPROATE SODIUM [Concomitant]
     Dosage: 600 MG, UNK
     Route: 048
  3. PROPRANOLOL [Concomitant]
     Indication: ANXIETY
     Dosage: 120 MG, UNK
     Route: 048
  4. SULPIRIDE [Concomitant]
     Indication: SCHIZOPHRENIA
     Dosage: 1200 MG, UNK
     Route: 048
  5. HYOSCINE HYDROBROMIDE [Concomitant]
     Dosage: 600 MG, UNK
     Route: 048
  6. PREGABALIN [Concomitant]
     Dosage: 450 MG, UNK
     Route: 048
  7. CLOZAPINE [Suspect]
     Route: 048
     Dates: start: 20061227
  8. LITHIUM CARBONATE [Concomitant]
     Dosage: 400 MG, UNK
     Route: 048

REACTIONS (1)
  - SUBARACHNOID HAEMORRHAGE [None]
